FAERS Safety Report 8060202-2 (Version None)
Quarter: 2012Q1

REPORT INFORMATION
  Report Type: 
  Country: None (occurrence: None)
  Receive Date: 20120120
  Receipt Date: 20110921
  Transmission Date: 20120608
  Serious: Yes (Hospitalization, Other)
  Sender: FDA-Public Use
  Company Number: BR-ROCHE-789385

PATIENT
  Sex: Female
  Weight: 53 kg

DRUGS (8)
  1. OMEPRAZOLE [Concomitant]
  2. MABTHERA [Suspect]
     Indication: PRODUCT USED FOR UNKNOWN INDICATION
     Dosage: DOSE RECEIVED ON 05-SEP-2011
     Route: 065
     Dates: start: 20110201, end: 20110919
  3. TRAMADOL HYDROCHLORIDE [Concomitant]
     Indication: PAIN
     Dosage: FREQUENCY: WHEN THE PATIENT FEELS PAIN
  4. PREDNISONE [Concomitant]
  5. METHOTREXATE [Concomitant]
  6. PANTOPRAZOLE [Concomitant]
  7. DOMPERIDONE [Concomitant]
     Dosage: AS NECESSARY
  8. ACETAMINOPHEN [Concomitant]
     Dosage: PRE-MEDICATION
     Dates: start: 20110201, end: 20110201

REACTIONS (5)
  - BONE PAIN [None]
  - SPINAL DEFORMITY [None]
  - GASTRITIS [None]
  - REFLUX GASTRITIS [None]
  - INTERVERTEBRAL DISC PROTRUSION [None]
